FAERS Safety Report 7558511-6 (Version None)
Quarter: 2011Q2

REPORT INFORMATION
  Report Type: 
  Country: None (occurrence: None)
  Receive Date: 20110620
  Receipt Date: 20110615
  Transmission Date: 20111010
  Serious: Yes (Hospitalization)
  Sender: FDA-Public Use
  Company Number: US-GILEAD-2011-0040336

PATIENT
  Sex: Female
  Weight: 50 kg

DRUGS (3)
  1. REVATIO [Concomitant]
  2. LETAIRIS [Suspect]
     Indication: PORTOPULMONARY HYPERTENSION
     Route: 048
     Dates: start: 20090324
  3. REMODULIN [Concomitant]

REACTIONS (1)
  - LIVER TRANSPLANT [None]
